FAERS Safety Report 21805791 (Version 2)
Quarter: 2023Q1

REPORT INFORMATION
  Report Type: Report from Study
  Country: None (occurrence: GB)
  Receive Date: 20230102
  Receipt Date: 20230110
  Transmission Date: 20230418
  Serious: Yes (Other)
  Sender: FDA-Public Use
  Company Number: GB-Therakind Limited-2136339

PATIENT
  Age: 59 Year
  Sex: Female

DRUGS (2)
  1. METHOTREXATE [Suspect]
     Active Substance: METHOTREXATE
  2. COSENTYX [Suspect]
     Active Substance: SECUKINUMAB

REACTIONS (6)
  - Mental fatigue [Unknown]
  - Product supply issue [Unknown]
  - Malaise [Unknown]
  - Psoriatic arthropathy [Unknown]
  - Skin haemorrhage [Unknown]
  - Rash [Unknown]
